FAERS Safety Report 22143352 (Version 1)
Quarter: 2023Q1

REPORT INFORMATION
  Report Type: Spontaneous
  Country: DE (occurrence: DE)
  Receive Date: 20230327
  Receipt Date: 20230327
  Transmission Date: 20230418
  Serious: Yes (Life-Threatening, Hospitalization, Other)
  Sender: FDA-Public Use
  Company Number: DE-EMBRYOTOX-202115835

PATIENT
  Age: 1 Day
  Sex: Female
  Weight: 3.89 kg

DRUGS (7)
  1. LAMOTRIGINE [Suspect]
     Active Substance: LAMOTRIGINE
     Indication: Bipolar disorder
     Dosage: 250 MG, QD SINCE ONE YEAR, 100 MG-0-150 MG DAILY
     Route: 064
     Dates: start: 20210630, end: 20220410
  2. DIMENHYDRINATE [Suspect]
     Active Substance: DIMENHYDRINATE
     Indication: Morning sickness
     Dosage: 450 MG QD 1. TRIM. 3X150 MG 2. TRIM. 3-6 70 MG
     Route: 064
     Dates: start: 20210821, end: 20220410
  3. CITALOPRAM [Suspect]
     Active Substance: CITALOPRAM HYDROBROMIDE
     Indication: Depression
     Dosage: 20 MILLIGRAM, QD
     Route: 064
     Dates: start: 20210805, end: 20220410
  4. ESCITALOPRAM [Concomitant]
     Active Substance: ESCITALOPRAM OXALATE
     Indication: Depression
     Dosage: 10 MILLIGRAM, QD
     Route: 064
     Dates: start: 20210630, end: 20210804
  5. ACETAMINOPHEN [Concomitant]
     Active Substance: ACETAMINOPHEN
     Indication: Migraine
     Dosage: 3000 MG QD AS NEEDED, UP TO 3X1000 MG
     Route: 064
     Dates: start: 20210908, end: 20220410
  6. PROMETHAZINE [Concomitant]
     Active Substance: PROMETHAZINE HYDROCHLORIDE
     Indication: Restlessness
     Dosage: AS NEEDED, APPROX. 20 TIMES DURING PREGNANCY
     Route: 064
  7. LEVOTHYROXINE SODIUM [Concomitant]
     Active Substance: LEVOTHYROXINE SODIUM
     Indication: Hypothyroidism
     Dosage: 50 MICROGRAM, QD
     Route: 064
     Dates: start: 20210630, end: 20220410

REACTIONS (7)
  - Brief resolved unexplained event [Recovered/Resolved]
  - Neonatal hypoxia [Recovered/Resolved]
  - Poor feeding infant [Unknown]
  - Cyanosis neonatal [Recovered/Resolved]
  - Somnolence [Recovered/Resolved]
  - Respiratory disorder neonatal [Recovered/Resolved]
  - Foetal exposure during pregnancy [Unknown]

NARRATIVE: CASE EVENT DATE: 20220401
